FAERS Safety Report 8522675-8 (Version None)
Quarter: 2012Q3

REPORT INFORMATION
  Report Type: 
  Country: None (occurrence: None)
  Receive Date: 20120719
  Receipt Date: 20120709
  Transmission Date: 20120928
  Serious: Yes (Death, Hospitalization)
  Sender: FDA-Public Use
  Company Number: US-VIIV HEALTHCARE LIMITED-A0953745A

PATIENT
  Age: 59 Year
  Sex: Male

DRUGS (1)
  1. EPZICOM [Suspect]
     Indication: PRODUCT USED FOR UNKNOWN INDICATION
     Route: 048
     Dates: start: 20110629, end: 20111115

REACTIONS (9)
  - CARDIOGENIC SHOCK [None]
  - ACUTE MYOCARDIAL INFARCTION [None]
  - TROPONIN INCREASED [None]
  - MALAISE [None]
  - DEATH [None]
  - VENTRICULAR TACHYCARDIA [None]
  - CHEST PAIN [None]
  - CORONARY ARTERY OCCLUSION [None]
  - ELECTROCARDIOGRAM CHANGE [None]
